FAERS Safety Report 23695354 (Version 4)
Quarter: 2024Q3

REPORT INFORMATION
  Report Type: Spontaneous
  Country: US (occurrence: US)
  Receive Date: 20240402
  Receipt Date: 20240703
  Transmission Date: 20241017
  Serious: No
  Sender: NOVARTIS
  Company Number: US-002147023-NVSC2024US069396

PATIENT
  Sex: Female

DRUGS (4)
  1. TAFINLAR [Suspect]
     Active Substance: DABRAFENIB MESYLATE
     Indication: Malignant melanoma
     Dosage: 150 MG, BID
     Route: 048
  2. TAFINLAR [Suspect]
     Active Substance: DABRAFENIB MESYLATE
     Indication: Psoriasis
     Dosage: 100 MG, Q12H
     Route: 048
     Dates: start: 202403
  3. MEKINIST [Suspect]
     Active Substance: TRAMETINIB DIMETHYL SULFOXIDE
     Indication: Malignant melanoma
     Dosage: 2 MG, QD
     Route: 048
     Dates: start: 202403
  4. MEKINIST [Suspect]
     Active Substance: TRAMETINIB DIMETHYL SULFOXIDE
     Indication: Psoriasis
     Dosage: 1.5 MG, QD
     Route: 048
     Dates: start: 202403

REACTIONS (13)
  - Pain [Unknown]
  - Fatigue [Unknown]
  - Oral pain [Unknown]
  - Constipation [Unknown]
  - Erythema [Unknown]
  - Skin discolouration [Unknown]
  - Dysphagia [Unknown]
  - Ulcer [Unknown]
  - Discomfort [Unknown]
  - Pyrexia [Unknown]
  - Contusion [Unknown]
  - Eczema [Unknown]
  - Decreased appetite [Unknown]
